FAERS Safety Report 5936027-8 (Version None)
Quarter: 2008Q4

REPORT INFORMATION
  Report Type: 
  Country: None (occurrence: None)
  Receive Date: 20081030
  Receipt Date: 20081027
  Transmission Date: 20090506
  Serious: Yes (Other)
  Sender: FDA-Public Use
  Company Number: US-BRISTOL-MYERS SQUIBB COMPANY-14369656

PATIENT
  Age: 58 Year
  Sex: Male
  Weight: 65 kg

DRUGS (8)
  1. EFAVIRENZ [Suspect]
     Indication: HIV INFECTION
     Dosage: 1 DOSAGEFORM = 1 DOSE
     Route: 048
     Dates: start: 20080827, end: 20080930
  2. TESTOSTERONE [Concomitant]
     Indication: BLOOD TESTOSTERONE DECREASED
     Route: 061
  3. METOPROLOL TARTRATE [Concomitant]
     Indication: HYPERTENSION
     Route: 048
  4. FLUCONAZOLE [Concomitant]
     Indication: CANDIDIASIS
     Route: 048
  5. FLUCONAZOLE [Concomitant]
     Route: 048
  6. BACTRIM [Concomitant]
     Indication: PNEUMOCYSTIS JIROVECI PNEUMONIA
     Route: 048
  7. TRUVADA [Concomitant]
     Indication: HIV INFECTION
     Route: 048
     Dates: start: 20080827
  8. ASPIRIN [Concomitant]
     Route: 048

REACTIONS (1)
  - HOMICIDAL IDEATION [None]
